FAERS Safety Report 8287916-3 (Version None)
Quarter: 2012Q2

REPORT INFORMATION
  Report Type: 
  Country: None (occurrence: None)
  Receive Date: 20120416
  Receipt Date: 20120405
  Transmission Date: 20120825
  Serious: Yes (Other)
  Sender: FDA-Public Use
  Company Number: GR-BRISTOL-MYERS SQUIBB COMPANY-16503781

PATIENT
  Age: 22 Year
  Sex: Female

DRUGS (3)
  1. ABILIFY [Suspect]
     Indication: ANXIETY
     Route: 048
  2. ABILIFY [Suspect]
     Indication: HALLUCINATION, AUDITORY
     Route: 048
  3. ABILIFY [Suspect]
     Indication: PARANOIA
     Route: 048

REACTIONS (4)
  - MOVEMENT DISORDER [None]
  - SEDATION [None]
  - FALL [None]
  - HYPOAESTHESIA [None]
